FAERS Safety Report 7227608-2 (Version None)
Quarter: 2011Q1

REPORT INFORMATION
  Report Type: 
  Country: None (occurrence: None)
  Receive Date: 20110114
  Receipt Date: 20110106
  Transmission Date: 20110831
  Serious: Yes (Other)
  Sender: FDA-Public Use
  Company Number: US-US-EMD SERONO, INC.-7025297

PATIENT
  Sex: Male
  Weight: 121 kg

DRUGS (15)
  1. REBIF [Suspect]
     Indication: MULTIPLE SCLEROSIS
     Route: 058
     Dates: start: 20100408, end: 20101001
  2. CYMBALTA [Concomitant]
  3. ADVAIR [Concomitant]
  4. NASONEX [Concomitant]
  5. UNSPECIFIED MEDICATION [Concomitant]
     Indication: DEPRESSION
  6. LISINOPRIL [Concomitant]
  7. PROAIR HFA [Concomitant]
  8. FLEXERIL [Concomitant]
     Indication: MUSCLE SPASMS
     Dates: end: 20100101
  9. LEXAPRO [Concomitant]
  10. SINGULAIR [Concomitant]
  11. BACLOFEN [Concomitant]
  12. VITAMIN D [Concomitant]
  13. REQUIP [Concomitant]
  14. ATENOLOL [Concomitant]
  15. UNSPECIFIED MEDICATION [Concomitant]
     Indication: ANXIETY
     Dates: start: 20000101

REACTIONS (8)
  - SPINAL COLUMN STENOSIS [None]
  - DIABETIC RETINOPATHY [None]
  - BLOOD GLUCOSE ABNORMAL [None]
  - INSOMNIA [None]
  - MUSCLE SPASMS [None]
  - SENSATION OF HEAVINESS [None]
  - PAIN IN EXTREMITY [None]
  - CATARACT [None]
